FAERS Safety Report 6380786-X (Version None)
Quarter: 2009Q3

REPORT INFORMATION
  Report Type: 
  Country: None (occurrence: None)
  Receive Date: 20090925
  Receipt Date: 20090925
  Transmission Date: 20100115
  Serious: No
  Sender: FDA-Public Use
  Company Number: None

PATIENT
  Age: 2 Year
  Sex: Male
  Weight: 11.3399 kg

DRUGS (2)
  1. SINGULAIR [Suspect]
     Indication: COUGH
     Dosage: 1 TABLET AT BEDTIME PO
     Route: 048
     Dates: start: 20090526, end: 20090619
  2. SINGULAIR [Suspect]
     Indication: HYPERSENSITIVITY
     Dosage: 1 TABLET AT BEDTIME PO
     Route: 048
     Dates: start: 20090526, end: 20090619

REACTIONS (5)
  - HALLUCINATION [None]
  - MIDDLE INSOMNIA [None]
  - NIGHT SWEATS [None]
  - NIGHTMARE [None]
  - SCREAMING [None]
